FAERS Safety Report 7330910-7 (Version None)
Quarter: 2011Q1

REPORT INFORMATION
  Report Type: 
  Country: None (occurrence: None)
  Receive Date: 20110225
  Receipt Date: 20110225
  Transmission Date: 20110831
  Serious: Yes (Other)
  Sender: FDA-Public Use
  Company Number: None

PATIENT
  Sex: Female
  Weight: 83.9154 kg

DRUGS (2)
  1. CELEXA [Suspect]
     Indication: ANXIETY
     Dosage: 1 ORANGE PILL ONCE DAILY PO
     Route: 048
     Dates: start: 20100701, end: 20110224
  2. CELEXA [Suspect]
     Indication: DEPRESSION
     Dosage: 1 ORANGE PILL ONCE DAILY PO
     Route: 048
     Dates: start: 20100701, end: 20110224

REACTIONS (1)
  - ALOPECIA [None]
